FAERS Safety Report 13739844 (Version 1)
Quarter: 2017Q3

REPORT INFORMATION
  Report Type: Other
  Country: US (occurrence: US)
  Receive Date: 20170710
  Receipt Date: 20170710
  Transmission Date: 20171127
  Serious: Yes (Hospitalization)
  Sender: FDA-Public Use
  Company Number: US--2017-US-000041

PATIENT
  Age: 84 Year
  Sex: Male

DRUGS (1)
  1. DONEPEZIL HYDROCHLORIDE BRAND UNSPECIFIED (VIVIMED) [Suspect]
     Active Substance: DONEPEZIL HYDROCHLORIDE
     Indication: PRODUCT USED FOR UNKNOWN INDICATION

REACTIONS (3)
  - Accidental overdose [None]
  - Electrocardiogram QT prolonged [Recovered/Resolved]
  - Cholinergic syndrome [Unknown]
